FAERS Safety Report 9858426 (Version 1)
Quarter: 2014Q1

REPORT INFORMATION
  Report Type: Spontaneous
  Country: US (occurrence: None)
  Receive Date: 20140129
  Receipt Date: 20140129
  Transmission Date: 20141002
  Serious: Yes (Other)
  Sender: FDA-Public Use
  Company Number: None

PATIENT
  Age: 78 Year
  Sex: Male
  Weight: 84 kg

DRUGS (12)
  1. ADENOSINE [Suspect]
     Indication: ARTERIAL THERAPEUTIC PROCEDURE
     Dosage: 90 MG/30 ML?136.51 MCG/KG/MIN?ONCE?INFUSION
     Dates: start: 20140124
  2. ASPIRIN CHEWABLE [Concomitant]
  3. COREG [Concomitant]
  4. DIGOXIN [Concomitant]
  5. FISH OIL SOFTGEL [Concomitant]
  6. FUROSEMIDE [Concomitant]
  7. LEVOSALBUTAMOL INHALER (XOPENEX HFA INHALER) [Concomitant]
  8. LISINOPRIL [Concomitant]
  9. POTASSIUM CHLORIDE (KLOR-CON) [Concomitant]
  10. PREVASTATIN (PRAVACHOL) [Concomitant]
  11. SALMETEROL/FLUTICASONE (ADVAIR DISKUS) [Concomitant]
  12. WARFARIN SODIUM [Concomitant]

REACTIONS (1)
  - No therapeutic response [None]
